FAERS Safety Report 24872872 (Version 1)
Quarter: 2025Q1

REPORT INFORMATION
  Report Type: Spontaneous
  Country: US (occurrence: US)
  Receive Date: 20250122
  Receipt Date: 20250122
  Transmission Date: 20250409
  Serious: Yes (Other)
  Sender: AMGEN
  Company Number: US-AMGEN-USASP2025010367

PATIENT

DRUGS (2)
  1. TEPROTUMUMAB [Suspect]
     Active Substance: TEPROTUMUMAB
     Indication: Endocrine ophthalmopathy
     Dosage: 10 MILLIGRAM, Q3WK, FIRST INFUSION
     Route: 040
  2. TEPROTUMUMAB [Suspect]
     Active Substance: TEPROTUMUMAB
     Dosage: 20 MILLIGRAM, Q3WK, 2-7 INFUSION
     Route: 040

REACTIONS (8)
  - Endocrine ophthalmopathy [Unknown]
  - Nausea [Unknown]
  - Muscle spasms [Unknown]
  - Alopecia [Unknown]
  - Onychoclasis [Unknown]
  - Hyperglycaemia [Unknown]
  - Therapeutic product effect incomplete [Unknown]
  - Incorrect dose administered [Unknown]
